FAERS Safety Report 21158337 (Version 1)
Quarter: 2022Q3

REPORT INFORMATION
  Report Type: Spontaneous
  Country: DE (occurrence: DE)
  Receive Date: 20220801
  Receipt Date: 20220801
  Transmission Date: 20221027
  Serious: No
  Sender: FDA-Public Use
  Company Number: DE-PADAGIS-2022PAD00222

PATIENT

DRUGS (3)
  1. CYCLOSPORINE [Suspect]
     Active Substance: CYCLOSPORINE
     Indication: Glomerulonephritis membranous
     Dosage: UNK
     Route: 065
  2. PREDNISOLONE [Concomitant]
     Active Substance: PREDNISOLONE
     Indication: Hypovitaminosis
     Dosage: UNK
     Route: 065
  3. CALCIDOL [ALFACALCIDOL] [Concomitant]
     Indication: Hypovitaminosis
     Dosage: UNK
     Route: 065

REACTIONS (5)
  - Hyperplasia [None]
  - Nasal obstruction [None]
  - Gingival hypertrophy [None]
  - Hirsutism [None]
  - Product use in unapproved indication [Unknown]
